FAERS Safety Report 23596049 (Version 1)
Quarter: 2024Q1

REPORT INFORMATION
  Report Type: Spontaneous
  Country: US (occurrence: US)
  Receive Date: 20240305
  Receipt Date: 20240305
  Transmission Date: 20240409
  Serious: No
  Sender: FDA-Public Use
  Company Number: US-GLENMARK PHARMACEUTICALS-2023GMK086296

PATIENT

DRUGS (2)
  1. ETHINYL ESTRADIOL\NORETHINDRONE ACETATE [Suspect]
     Active Substance: ETHINYL ESTRADIOL\NORETHINDRONE ACETATE
     Indication: Oral contraception
     Dosage: UNK, OD
     Route: 048
  2. SERTRALINE [Suspect]
     Active Substance: SERTRALINE HYDROCHLORIDE
     Indication: Anxiety
     Dosage: UNK MILLIGRAM
     Route: 065

REACTIONS (5)
  - Uterine spasm [Recovering/Resolving]
  - Product use issue [Unknown]
  - Epistaxis [Unknown]
  - Wrong technique in product usage process [Unknown]
  - Vaginal haemorrhage [Recovering/Resolving]
